FAERS Safety Report 20591775 (Version 3)
Quarter: 2022Q2

REPORT INFORMATION
  Report Type: Report from Study
  Country: IL (occurrence: IL)
  Receive Date: 20220314
  Receipt Date: 20220519
  Transmission Date: 20220721
  Serious: No
  Sender: FDA-Public Use
  Company Number: IL-ABBVIE-22P-082-4305302-00

PATIENT
  Age: 82 Year
  Sex: Male
  Weight: 70 kg

DRUGS (16)
  1. LEMZOPARLIMAB [Suspect]
     Active Substance: LEMZOPARLIMAB
     Indication: Acute myeloid leukaemia
     Dosage: ON DAYS 1, 8, 15, AND 22 OF A 28-DAY CYCLE
     Route: 042
     Dates: start: 20210102, end: 20220206
  2. LEMZOPARLIMAB [Suspect]
     Active Substance: LEMZOPARLIMAB
     Dosage: ON DAYS 1, 8, 15, AND 22 OF A 28-DAY CYCLE
     Route: 042
     Dates: start: 20220213, end: 20220227
  3. LEMZOPARLIMAB [Suspect]
     Active Substance: LEMZOPARLIMAB
     Dosage: ON DAYS 1, 8, 15, AND 22 OF A 28-DAY CYCLE
     Route: 042
     Dates: start: 20220307, end: 20220307
  4. LEMZOPARLIMAB [Suspect]
     Active Substance: LEMZOPARLIMAB
     Dosage: ON DAYS 1, 8, 15, AND 22 OF A 28-DAY CYCLE
     Route: 042
     Dates: start: 20220314
  5. VENETOCLAX [Suspect]
     Active Substance: VENETOCLAX
     Indication: Acute myeloid leukaemia
     Dosage: DURING EACH 28-DAY TREATMENT CYCLE
     Route: 048
     Dates: start: 20211226, end: 20220205
  6. VENETOCLAX [Suspect]
     Active Substance: VENETOCLAX
     Dosage: DURING EACH 28-DAY TREATMENT CYCLE
     Route: 048
     Dates: start: 20220309
  7. AZACITIDINE [Suspect]
     Active Substance: AZACITIDINE
     Indication: Acute myeloid leukaemia
     Dosage: FOR 7 DAYS WITHIN THE FIRST 9 CALENDAR DAYS OF EACH 28-DAY CYCLE
     Route: 058
     Dates: start: 20211226, end: 20220209
  8. AZACITIDINE [Suspect]
     Active Substance: AZACITIDINE
     Dosage: FOR 7 DAYS WITHIN THE FIRST 9 CALENDAR DAYS OF EACH 28-DAY CYCLE
     Route: 058
     Dates: start: 20220213
  9. ATORVASTATIN [Concomitant]
     Active Substance: ATORVASTATIN
     Indication: Dyslipidaemia
     Route: 048
     Dates: start: 201010
  10. CALCIUM [Concomitant]
     Active Substance: CALCIUM
     Indication: Osteoporosis prophylaxis
     Route: 048
     Dates: start: 2010
  11. VITAMIN D [Concomitant]
     Active Substance: VITAMIN D NOS
     Indication: Osteoporosis prophylaxis
     Route: 048
     Dates: start: 2010
  12. FOLIC ACID [Concomitant]
     Active Substance: FOLIC ACID
     Indication: Acute myeloid leukaemia
     Route: 048
     Dates: start: 2010
  13. AMIODARONE HYDROCHLORIDE [Concomitant]
     Active Substance: AMIODARONE HYDROCHLORIDE
     Indication: Arrhythmia
     Route: 048
     Dates: start: 2016
  14. ESOMEPRAZOLE [Concomitant]
     Active Substance: ESOMEPRAZOLE
     Indication: Antacid therapy
     Route: 048
     Dates: start: 2015
  15. NEUPOGEN [Concomitant]
     Active Substance: FILGRASTIM
     Indication: Neutrophil count decreased
     Dosage: 300 UG/L
     Route: 058
     Dates: start: 20220123, end: 20220123
  16. NEUPOGEN [Concomitant]
     Active Substance: FILGRASTIM
     Dosage: 300 UG/L
     Route: 058
     Dates: start: 20220130

REACTIONS (1)
  - Thrombocytopenia [Not Recovered/Not Resolved]

NARRATIVE: CASE EVENT DATE: 20220208
